FAERS Safety Report 7428991-5 (Version None)
Quarter: 2011Q2

REPORT INFORMATION
  Report Type: 
  Country: None (occurrence: None)
  Receive Date: 20110421
  Receipt Date: 20110415
  Transmission Date: 20111010
  Serious: Yes (Hospitalization, Disabling)
  Sender: FDA-Public Use
  Company Number: US-B.I. PHARMACEUTICALS,INC./RIDGEFIELD-2011-BP-01479BP

PATIENT
  Age: 80 Year
  Sex: Female
  Weight: 59.42 kg

DRUGS (6)
  1. DIOVAN [Concomitant]
     Dosage: 160 MG
     Dates: start: 20100801
  2. HYDROCHLOROTHIAZIDE [Concomitant]
     Dosage: 25 MG
     Dates: start: 20100801
  3. LOPRESSOR [Concomitant]
     Dosage: 100 MG
     Dates: start: 20090101
  4. ZOCOR [Concomitant]
     Dosage: 20 MG
     Dates: start: 20090101
  5. RAMIPRIL [Concomitant]
     Dosage: 10 MG
     Dates: start: 20090101
  6. PRADAXA [Suspect]
     Indication: ATRIAL FIBRILLATION
     Dosage: 300 MG
     Route: 048
     Dates: start: 20110117, end: 20110119

REACTIONS (4)
  - ISCHAEMIC STROKE [None]
  - DYSARTHRIA [None]
  - DYSPHAGIA [None]
  - HEMIPLEGIA [None]
